FAERS Safety Report 8572498-9 (Version None)
Quarter: 2012Q3

REPORT INFORMATION
  Report Type: 
  Country: None (occurrence: None)
  Receive Date: 20120806
  Receipt Date: 20120725
  Transmission Date: 20120928
  Serious: Yes (Hospitalization)
  Sender: FDA-Public Use
  Company Number: BE-ROCHE-1091659

PATIENT
  Sex: Female
  Weight: 62.4 kg

DRUGS (16)
  1. ALDACTONE [Concomitant]
     Indication: OEDEMA
     Route: 048
  2. INNOHEP [Concomitant]
     Indication: PULMONARY EMBOLISM
     Route: 058
     Dates: start: 20120704
  3. LEUCOVORIN CALCIUM [Suspect]
     Indication: COLON CANCER
     Route: 042
     Dates: start: 20120522
  4. MEROPENEM [Concomitant]
     Indication: LARGE INTESTINE PERFORATION
     Route: 042
     Dates: start: 20120722
  5. PANTOPRAZOLE [Concomitant]
     Indication: PROPHYLAXIS AGAINST GASTROINTESTINAL ULCER
     Route: 048
  6. IRINOTECAN HYDROCHLORIDE [Suspect]
     Indication: COLON CANCER
     Route: 042
     Dates: start: 20120522
  7. FLUOROURACIL [Suspect]
     Indication: COLON CANCER
     Route: 042
     Dates: start: 20120522
  8. SANDOSTATIN [Concomitant]
     Route: 042
     Dates: start: 20120722
  9. PROMAGNOR [Concomitant]
     Route: 048
  10. TRAMADOL HCL [Concomitant]
     Indication: PAIN
     Route: 048
  11. FLUOROURACIL [Suspect]
     Route: 042
     Dates: start: 20120522
  12. ACETAMINOPHEN [Concomitant]
     Indication: PAIN
     Route: 042
  13. ARANESP [Concomitant]
     Route: 058
     Dates: start: 20120620, end: 20120620
  14. AVASTIN [Suspect]
     Indication: COLON CANCER
     Route: 042
     Dates: start: 20120522, end: 20120704
  15. MEDROL [Concomitant]
     Indication: OEDEMA
     Route: 048
  16. MORPHINE [Concomitant]
     Indication: PAIN

REACTIONS (6)
  - PULMONARY EMBOLISM [None]
  - OEDEMA [None]
  - DECREASED APPETITE [None]
  - ASTHENIA [None]
  - FATIGUE [None]
  - LARGE INTESTINE PERFORATION [None]
